FAERS Safety Report 10776897 (Version 1)
Quarter: 2015Q1

REPORT INFORMATION
  Report Type: Spontaneous
  Country: US (occurrence: None)
  Receive Date: 20150206
  Receipt Date: 20150206
  Transmission Date: 20150721
  Serious: No
  Sender: FDA-Public Use
  Company Number: None

PATIENT
  Age: 84 Year
  Sex: Male
  Weight: 65.77 kg

DRUGS (3)
  1. RAPAFLO [Concomitant]
     Active Substance: SILODOSIN
  2. ALVESCO [Suspect]
     Active Substance: CICLESONIDE
     Indication: INCREASED BRONCHIAL SECRETION
     Route: 055
     Dates: start: 20150114, end: 20150123
  3. XARELTO [Concomitant]
     Active Substance: RIVAROXABAN

REACTIONS (2)
  - Ventricular extrasystoles [None]
  - Supraventricular extrasystoles [None]

NARRATIVE: CASE EVENT DATE: 20150124
